FAERS Safety Report 8698293 (Version 18)
Quarter: 2014Q1

REPORT INFORMATION
  Report Type: Spontaneous
  Country: US (occurrence: US)
  Receive Date: 20120802
  Receipt Date: 20140305
  Transmission Date: 20141002
  Serious: Yes (Hospitalization, Other)
  Sender: FDA-Public Use
  Company Number: PHEH2007US016487

PATIENT
  Age: 65 Year
  Sex: Female
  Weight: 64.4 kg

DRUGS (64)
  1. AREDIA [Suspect]
     Indication: METASTASES TO BONE
     Dosage: 90 MG, QMO
     Route: 042
     Dates: start: 200108, end: 20041011
  2. ZOMETA [Suspect]
     Indication: METASTASES TO BONE
     Dosage: 4 MG
     Route: 042
     Dates: start: 20020524
  3. HYDROCODONE [Suspect]
     Dosage: 5 MG, PRN
     Route: 048
  4. CLINDAMYCIN [Suspect]
     Dosage: 150 MG, TID
  5. ARIMIDEX [Concomitant]
     Dates: start: 200108
  6. NAVELBINE ^ASTA MEDICA^ [Concomitant]
  7. TAXOTERE [Concomitant]
     Dosage: 20 MG
  8. GEMZAR [Concomitant]
  9. DOCETAXEL [Concomitant]
  10. MIACALCIN [Concomitant]
  11. ANASTROZOLE [Concomitant]
  12. GEMCITABINE [Concomitant]
  13. CELEBREX [Concomitant]
  14. ULTRACET [Concomitant]
  15. AROMASIN [Concomitant]
  16. AMOXICILLIN [Concomitant]
  17. PERIDEX [Concomitant]
  18. FOSAMAX [Concomitant]
  19. ANCEF [Concomitant]
  20. TEQUIN [Concomitant]
  21. MAXIPIME [Concomitant]
  22. NEURONTIN [Concomitant]
  23. SOMA [Concomitant]
  24. SKELAXIN [Concomitant]
  25. DURAGESIC [Concomitant]
  26. LORCET [Concomitant]
  27. LORTAB [Concomitant]
  28. CYCLOBENZAPRINE [Concomitant]
  29. EFEXOR XR [Concomitant]
  30. AMBIEN [Concomitant]
  31. PROMETHAZINE [Concomitant]
  32. CLOBETASOL [Concomitant]
  33. CEPHALEXIN [Concomitant]
  34. DIAZEPAM [Concomitant]
  35. PROPOXYPHENE NAPSYLATE W/ACETAMINOPHENE [Concomitant]
  36. MELOXICAM [Concomitant]
  37. TRAMADOL [Concomitant]
  38. ACYCLOVIR [Concomitant]
  39. DIFLUCAN [Concomitant]
  40. DECADRON                                /NET/ [Concomitant]
  41. BENADRYL ^ACHE^ [Concomitant]
  42. PEPCID [Concomitant]
  43. PHENERGAN ^AVENTIS PHARMA^ [Concomitant]
  44. PROTONIX ^PHARMACIA^ [Concomitant]
  45. TRAZODONE [Concomitant]
  46. VITAMIN K [Concomitant]
  47. FLEXERIL [Concomitant]
  48. HYDROXYZINE [Concomitant]
  49. TAGAMET [Concomitant]
  50. BICITRA                            /02399901/ [Concomitant]
  51. MORPHINE [Concomitant]
  52. RITALIN [Concomitant]
  53. GENTAMICIN [Concomitant]
  54. PERI-COLACE [Concomitant]
  55. QUININE [Concomitant]
  56. CONCERTA [Concomitant]
  57. VICODIN [Concomitant]
  58. WARFARIN [Concomitant]
  59. METHOTREXATE [Concomitant]
     Dosage: 2.5 MG, QW
  60. PREDNISONE [Concomitant]
     Dosage: 10 MG, QD
  61. FLAGYL [Concomitant]
     Dosage: 250 MG, TID
  62. ULTRAM [Concomitant]
     Dosage: 50 MG, PRN
  63. OMEPRAZOLE [Concomitant]
     Dosage: 40 MG, QD
  64. ASACOL [Concomitant]
     Dosage: 2 DF, BID

REACTIONS (137)
  - Osteonecrosis of jaw [Unknown]
  - Osteomyelitis [Unknown]
  - Osteosclerosis [Unknown]
  - Rectal haemorrhage [Unknown]
  - Device related infection [Unknown]
  - Gingival recession [Unknown]
  - Gingival oedema [Unknown]
  - Tenderness [Unknown]
  - Impaired healing [Unknown]
  - Loose tooth [Unknown]
  - Oral candidiasis [Unknown]
  - Face and mouth X-ray abnormal [Unknown]
  - Osteitis [Unknown]
  - Gingivitis [Unknown]
  - Computerised tomogram abnormal [Unknown]
  - Hypercoagulation [Unknown]
  - Deep vein thrombosis [Unknown]
  - Localised infection [Recovered/Resolved]
  - Depressive symptom [Unknown]
  - Staphylococcal infection [Unknown]
  - Back pain [Not Recovered/Not Resolved]
  - Arthralgia [Unknown]
  - Weight decreased [Unknown]
  - Synovial cyst [Unknown]
  - Swelling [Unknown]
  - Metastases to bone [Unknown]
  - Chronic obstructive pulmonary disease [Unknown]
  - Pulmonary mass [Unknown]
  - Bone scan abnormal [Unknown]
  - Anaemia [Unknown]
  - Metastases to central nervous system [Unknown]
  - Arthritis [Unknown]
  - Arteriosclerosis [Unknown]
  - Pneumothorax [Unknown]
  - Osteoporosis [Unknown]
  - Gastrointestinal haemorrhage [Unknown]
  - Haematochezia [Unknown]
  - Agranulocytosis [Unknown]
  - Ileus paralytic [Unknown]
  - Streptococcal infection [Unknown]
  - Venous insufficiency [Unknown]
  - Compression fracture [Unknown]
  - Radius fracture [Unknown]
  - Fall [Unknown]
  - Dyspnoea [Unknown]
  - Chest pain [Unknown]
  - Osteoarthritis [Unknown]
  - Intervertebral disc degeneration [Unknown]
  - Tendon disorder [Unknown]
  - Arthropathy [Unknown]
  - Joint effusion [Unknown]
  - Spinal deformity [Unknown]
  - Spinal disorder [Unknown]
  - Night sweats [Unknown]
  - Tinnitus [Unknown]
  - Headache [Unknown]
  - Vision blurred [Unknown]
  - Breast cancer metastatic [Unknown]
  - Pulmonary fibrosis [Unknown]
  - Bone atrophy [Unknown]
  - Foot fracture [Unknown]
  - Vaginal infection [Unknown]
  - Hypotension [Unknown]
  - Syncope [Unknown]
  - Anogenital warts [Unknown]
  - Neurodermatitis [Unknown]
  - Seborrhoeic keratosis [Unknown]
  - Varicose vein [Unknown]
  - Thrombophlebitis [Unknown]
  - Foot deformity [Unknown]
  - Lymphoedema [Unknown]
  - Corneal dystrophy [Unknown]
  - Cataract nuclear [Unknown]
  - Crohn^s disease [Unknown]
  - Head injury [Unknown]
  - Urinary tract infection [Unknown]
  - Hypertension [Unknown]
  - Bladder prolapse [Unknown]
  - Pyuria [Unknown]
  - Intestinal ulcer [Unknown]
  - Colitis [Unknown]
  - Hypoacusis [Unknown]
  - Hand fracture [Unknown]
  - Arrhythmia supraventricular [Unknown]
  - Blood pressure fluctuation [Unknown]
  - Supraventricular tachycardia [Unknown]
  - Cardiomegaly [Unknown]
  - Age-related macular degeneration [Unknown]
  - Vitreous floaters [Unknown]
  - Splenic calcification [Unknown]
  - Hiatus hernia [Unknown]
  - Enteritis [Unknown]
  - Pulmonary granuloma [Unknown]
  - Aortic calcification [Unknown]
  - Vascular calcification [Unknown]
  - Cataract [Unknown]
  - Exfoliation glaucoma [Unknown]
  - Bronchitis chronic [Unknown]
  - Inflammatory bowel disease [Unknown]
  - Local swelling [Unknown]
  - Lung hyperinflation [Unknown]
  - Disorientation [Unknown]
  - Kyphosis [Unknown]
  - Bone marrow oedema [Unknown]
  - Pathological fracture [Unknown]
  - Senile osteoporosis [Unknown]
  - Spinal compression fracture [Unknown]
  - Nausea [Unknown]
  - Vomiting [Unknown]
  - Pruritus [Unknown]
  - Device failure [Unknown]
  - Upper limb fracture [Unknown]
  - Ecchymosis [Unknown]
  - Humerus fracture [Unknown]
  - Bone lesion [Not Recovered/Not Resolved]
  - Toxicity to various agents [Recovering/Resolving]
  - Joint swelling [Unknown]
  - Anxiety [Unknown]
  - Hand deformity [Unknown]
  - Wrist fracture [Unknown]
  - Renal failure chronic [Unknown]
  - Pneumonia viral [Unknown]
  - Upper respiratory tract infection [Unknown]
  - Gastrooesophageal reflux disease [Unknown]
  - Cutis laxa [Unknown]
  - Deafness neurosensory [Unknown]
  - Cerumen impaction [Unknown]
  - Hypovolaemia [Unknown]
  - Insomnia [Unknown]
  - Ligament sprain [Unknown]
  - Dizziness [Unknown]
  - Eustachian tube dysfunction [Unknown]
  - Dyslipidaemia [Unknown]
  - Primary sequestrum [Unknown]
  - Tooth loss [Unknown]
  - Balance disorder [Unknown]
  - Memory impairment [Unknown]
